FAERS Safety Report 4692803-3 (Version None)
Quarter: 2005Q2

REPORT INFORMATION
  Report Type: 
  Country: None (occurrence: None)
  Receive Date: 20050617
  Receipt Date: 20050421
  Transmission Date: 20051028
  Serious: Yes (Other)
  Sender: FDA-Public Use
  Company Number: PHNU2005DE01716

PATIENT
  Age: 78 Year
  Sex: Female

DRUGS (2)
  1. ZOMETA [Suspect]
     Indication: MULTIPLE MYELOMA
     Dosage: 4 MG, QMO
     Route: 042
     Dates: start: 20030901, end: 20050201
  2. AREDIA [Suspect]
     Indication: PLASMACYTOMA
     Route: 042
     Dates: start: 20010701, end: 20050101

REACTIONS (4)
  - ASEPTIC NECROSIS BONE [None]
  - DENTAL OPERATION [None]
  - OSTEONECROSIS [None]
  - TOOTH DISORDER [None]
